FAERS Safety Report 5517478-2 (Version None)
Quarter: 2007Q4

REPORT INFORMATION
  Report Type: 
  Country: None (occurrence: None)
  Receive Date: 20071114
  Receipt Date: 20071107
  Transmission Date: 20080405
  Serious: Yes (Other)
  Sender: FDA-Public Use
  Company Number: CO-ROCHE-530725

PATIENT
  Age: 70 Year
  Sex: Female
  Weight: 73 kg

DRUGS (6)
  1. BONIVA [Suspect]
     Indication: OSTEOPOROSIS
     Route: 048
     Dates: start: 20070201, end: 20070501
  2. LOPID [Concomitant]
     Indication: HYPERCHOLESTEROLAEMIA
     Dosage: DOSAGE/REGIMEN REPORTED AS ^DAY^
     Route: 048
     Dates: start: 19970101
  3. ZETIA [Concomitant]
     Indication: HYPERCHOLESTEROLAEMIA
     Dosage: DOSAGE/REGIMEN REPORTED AS ^DAY^
     Route: 048
     Dates: start: 20020101
  4. SYNTHROID [Concomitant]
     Indication: HYPOTHYROIDISM
     Dosage: DOSAGE/REGIMEN REPORTED AS ^DAY^
     Route: 048
     Dates: start: 19920101
  5. XANAX [Concomitant]
     Dosage: DOSAGE/REGIMEN REPORTED AS ^DAY^.
     Route: 048
     Dates: start: 19950101
  6. 1 CONCOMITANT DRUG [Concomitant]
     Dosage: DRUG REPORTED AS ^TRITICO^
     Route: 048
     Dates: start: 19950101

REACTIONS (2)
  - BREAST PAIN [None]
  - THELITIS [None]
